FAERS Safety Report 11880397 (Version 1)
Quarter: 2015Q4

REPORT INFORMATION
  Report Type: Spontaneous
  Country: US (occurrence: US)
  Receive Date: 20151230
  Receipt Date: 20151230
  Transmission Date: 20160305
  Serious: No
  Sender: FDA-Public Use
  Company Number: US-ACORDA-ACO_111631_2015

PATIENT
  Age: 63 Year
  Sex: Male

DRUGS (2)
  1. TIZANIDINE. [Suspect]
     Active Substance: TIZANIDINE
     Indication: PRODUCT USED FOR UNKNOWN INDICATION
     Dosage: UNK
     Route: 065
  2. AMITRIPTYLINE [Suspect]
     Active Substance: AMITRIPTYLINE
     Indication: PRODUCT USED FOR UNKNOWN INDICATION

REACTIONS (5)
  - Incoherent [Unknown]
  - Syncope [Unknown]
  - Drug hypersensitivity [Unknown]
  - Asthenia [Unknown]
  - Dysarthria [Unknown]

NARRATIVE: CASE EVENT DATE: 20110907
